FAERS Safety Report 6838636-0 (Version None)
Quarter: 2010Q3

REPORT INFORMATION
  Report Type: 
  Country: None (occurrence: None)
  Receive Date: 20100713
  Receipt Date: 20070605
  Transmission Date: 20110219
  Serious: No
  Sender: FDA-Public Use
  Company Number: US-PFIZER INC-2007041989

PATIENT
  Sex: Female
  Weight: 127.27 kg

DRUGS (12)
  1. CHANTIX [Suspect]
     Indication: SMOKING CESSATION THERAPY
     Dates: start: 20070506
  2. SINEMET [Concomitant]
     Indication: PARKINSON'S DISEASE
  3. BENICAR [Concomitant]
  4. FENOFIBRATE [Concomitant]
     Indication: BLOOD CHOLESTEROL INCREASED
  5. ACETYLSALICYLIC ACID [Concomitant]
  6. ATENOLOL [Concomitant]
  7. ENALAPRIL [Concomitant]
  8. ALL OTHER THERAPEUTIC PRODUCTS [Concomitant]
  9. CENTRUM [Concomitant]
  10. ALPRAZOLAM [Concomitant]
  11. PRAVASTATIN [Concomitant]
  12. MIRTAZAPINE [Concomitant]

REACTIONS (2)
  - NAUSEA [None]
  - VOMITING [None]
